FAERS Safety Report 13464810 (Version 3)
Quarter: 2017Q2

REPORT INFORMATION
  Report Type: Spontaneous
  Country: US (occurrence: US)
  Receive Date: 20170420
  Receipt Date: 20170609
  Transmission Date: 20170830
  Serious: No
  Sender: FDA-Public Use
  Company Number: US-ASTRAZENECA-2017SE40642

PATIENT
  Sex: Female

DRUGS (1)
  1. TUDORZA PRESSAIR [Suspect]
     Active Substance: ACLIDINIUM BROMIDE
     Dosage: 400 MCG ONE PUFF TWICE A DAY
     Route: 055
     Dates: start: 201604

REACTIONS (4)
  - Product quality issue [Unknown]
  - Ankle fracture [Not Recovered/Not Resolved]
  - Intentional product misuse [Unknown]
  - Device failure [Unknown]
